FAERS Safety Report 9251136 (Version 3)
Quarter: 2013Q3

REPORT INFORMATION
  Report Type: Spontaneous
  Country: US (occurrence: US)
  Receive Date: 20130424
  Receipt Date: 20130927
  Transmission Date: 20140515
  Serious: Yes (Hospitalization, Disabling)
  Sender: FDA-Public Use
  Company Number: US-ASTRAZENECA-2013SE27338

PATIENT
  Age: 41 Year
  Sex: Female

DRUGS (14)
  1. NEXIUM [Suspect]
     Indication: GASTROOESOPHAGEAL REFLUX DISEASE
     Route: 048
     Dates: start: 1998, end: 2011
  2. NEXIUM [Suspect]
     Indication: GASTROOESOPHAGEAL REFLUX DISEASE
     Route: 048
     Dates: start: 2000, end: 2011
  3. NEXIUM [Suspect]
     Indication: GASTROOESOPHAGEAL REFLUX DISEASE
     Dosage: 1ST ONCE A DAY THEN TWICE A DAY
     Route: 048
     Dates: start: 2000, end: 2011
  4. NEXIUM [Suspect]
     Indication: GASTROOESOPHAGEAL REFLUX DISEASE
     Route: 048
     Dates: start: 20031007
  5. NEXIUM [Suspect]
     Indication: GASTROOESOPHAGEAL REFLUX DISEASE
     Route: 048
     Dates: end: 20121022
  6. ROLAIDS [Concomitant]
     Dosage: TWO OR THREE TABLET
  7. PROZAC [Concomitant]
     Route: 048
     Dates: start: 20110503
  8. KLONOPIN [Concomitant]
     Dates: start: 20110503
  9. WELLBUTRIN [Concomitant]
  10. IFLORA [Concomitant]
  11. METRONIDAZOLE [Concomitant]
  12. XIFAXAN [Concomitant]
  13. FAMOTIDINE [Concomitant]
  14. TOFRANIL [Concomitant]
     Route: 048
     Dates: start: 20110503

REACTIONS (13)
  - Pneumonia [Unknown]
  - Anxiety [Unknown]
  - Osteoporosis [Unknown]
  - Bone density decreased [Unknown]
  - Bone disorder [Unknown]
  - Multiple fractures [Unknown]
  - Fall [Unknown]
  - Calcium deficiency [Unknown]
  - Arthritis [Unknown]
  - Hypothyroidism [Unknown]
  - Weight increased [Unknown]
  - Vitamin D deficiency [Unknown]
  - Tooth fracture [Unknown]
